FAERS Safety Report 18817704 (Version 2)
Quarter: 2021Q1

REPORT INFORMATION
  Report Type: Spontaneous
  Country: US (occurrence: US)
  Receive Date: 20210201
  Receipt Date: 20210211
  Transmission Date: 20210419
  Serious: Yes (Other)
  Sender: FDA-Public Use
  Company Number: US-JUBILANT CADISTA PHARMACEUTICALS-2021JUB00018

PATIENT
  Age: 61 Year
  Sex: Male
  Weight: 104.33 kg

DRUGS (9)
  1. TETRACYCLINE [Suspect]
     Active Substance: TETRACYCLINE
     Indication: FACIAL PARALYSIS
     Dosage: 100 MG, 2X/DAY
     Route: 048
     Dates: start: 20210102
  2. METHYLPREDNISOLONE (PAR) [Suspect]
     Active Substance: METHYLPREDNISOLONE
     Indication: FACIAL PARALYSIS
     Dosage: STARTS WITH 6 TABLETS FIRST DAY; DOSE PACK
     Dates: start: 20210102
  3. BYDUREON [Concomitant]
     Active Substance: EXENATIDE
     Dosage: 2 MG, 1X/WEEK
     Route: 058
  4. NORVASC [Concomitant]
     Active Substance: AMLODIPINE BESYLATE
     Dosage: 10 MG, 1X/DAY
  5. LISINOPRIL. [Concomitant]
     Active Substance: LISINOPRIL
     Dosage: 40 MG, 1X/DAY
  6. PREDNISONE. [Suspect]
     Active Substance: PREDNISONE
     Indication: FACIAL PARALYSIS
     Dosage: 20 MG, 3X/DAY FOR 5 DAYS
     Route: 048
     Dates: start: 20210102
  7. ACYCLOVIR. [Suspect]
     Active Substance: ACYCLOVIR
     Indication: FACIAL PARALYSIS
     Dosage: 400 MG, 5X/DAY
     Route: 048
     Dates: start: 20210104
  8. HYDROCHLOROTHIAZIDE. [Concomitant]
     Active Substance: HYDROCHLOROTHIAZIDE
     Dosage: 12.5 MG, 1X/DAY
  9. PROTONIX [Concomitant]
     Active Substance: PANTOPRAZOLE SODIUM
     Dosage: 40 MG, 1X/DAY

REACTIONS (3)
  - Blood glucose increased [Unknown]
  - Drug ineffective for unapproved indication [Unknown]
  - Facial paralysis [Recovering/Resolving]

NARRATIVE: CASE EVENT DATE: 202101
